FAERS Safety Report 4286716-9 (Version None)
Quarter: 2004Q1

REPORT INFORMATION
  Report Type: 
  Country: None (occurrence: None)
  Receive Date: 20040204
  Receipt Date: 20040126
  Transmission Date: 20041129
  Serious: Yes (Hospitalization)
  Sender: FDA-Public Use
  Company Number: 2004002577

PATIENT
  Age: 77 Year
  Sex: Female
  Weight: 66.5 kg

DRUGS (6)
  1. AMLODIPINE [Suspect]
     Indication: HYPERTENSION
     Dosage: 5 MG (DAILY), ORAL
     Route: 048
     Dates: start: 20030930, end: 20031007
  2. LANSOPRAZOLE [Concomitant]
  3. LISINOPRIL [Concomitant]
  4. ACETYLSALICYLIC ACID SRT [Concomitant]
  5. ATORVASTATIN CALCIUM [Concomitant]
  6. CLOPIDOGREL BISULFATE [Concomitant]

REACTIONS (7)
  - COUGH [None]
  - DYSPNOEA [None]
  - LOWER RESPIRATORY TRACT INFECTION [None]
  - LUNG DISORDER [None]
  - RENAL CYST [None]
  - SCAR [None]
  - SWELLING FACE [None]
